FAERS Safety Report 4860546-9 (Version None)
Quarter: 2005Q4

REPORT INFORMATION
  Report Type: 
  Country: None (occurrence: None)
  Receive Date: 20051216
  Receipt Date: 20051202
  Transmission Date: 20060501
  Serious: Yes (Hospitalization)
  Sender: FDA-Public Use
  Company Number: 0205058

PATIENT
  Age: 77 Year
  Sex: Female

DRUGS (1)
  1. DEPODUR [Suspect]
     Indication: POSTOPERATIVE ANALGESIA
     Dosage: (ONCE)

REACTIONS (7)
  - HYPOVENTILATION [None]
  - MENTAL IMPAIRMENT [None]
  - MIOSIS [None]
  - MYOCARDIAL INFARCTION [None]
  - PULMONARY EMBOLISM [None]
  - THERAPY NON-RESPONDER [None]
  - WHEEZING [None]
